FAERS Safety Report 16154140 (Version 3)
Quarter: 2019Q2

REPORT INFORMATION
  Report Type: Spontaneous
  Country: PT (occurrence: PT)
  Receive Date: 20190403
  Receipt Date: 20190423
  Transmission Date: 20190711
  Serious: Yes (Other)
  Sender: FDA-Public Use
  Company Number: PT-AMREGENT-20190591

PATIENT
  Age: 73 Year
  Weight: 81.5 kg

DRUGS (1)
  1. VENOFER [Suspect]
     Active Substance: IRON SUCROSE
     Dosage: 10G FOLLOWING HAEMODIALYSIS
     Route: 042
     Dates: start: 20190301, end: 20190301

REACTIONS (8)
  - Feeling hot [Unknown]
  - Underdose [Unknown]
  - Sensation of foreign body [Unknown]
  - Contraindicated product administered [Unknown]
  - Malaise [Unknown]
  - Erythema [Unknown]
  - Vomiting [Unknown]
  - Urinary retention [Unknown]

NARRATIVE: CASE EVENT DATE: 20190301
